FAERS Safety Report 8470379-2 (Version None)
Quarter: 2012Q2

REPORT INFORMATION
  Report Type: 
  Country: None (occurrence: None)
  Receive Date: 20120323
  Receipt Date: 20111011
  Transmission Date: 20120825
  Serious: Yes (Hospitalization)
  Sender: FDA-Public Use
  Company Number: 163-21880-11101289

PATIENT
  Age: 68 Year
  Sex: Female

DRUGS (9)
  1. CALCIUM WITH VITAMIN D (CALCIUM WITH VITAMIN D) [Concomitant]
  2. LISINOPRIL [Concomitant]
  3. VITAMIN D [Concomitant]
  4. BACTRIM DS [Concomitant]
  5. REVLIMID [Suspect]
     Indication: CHRONIC LYMPHOCYTIC LEUKAEMIA
     Dosage: 10 MG, DAILY X 21 DAYS, PO
     Route: 048
     Dates: start: 20110922
  6. ACTONEL [Concomitant]
  7. OMEPRAZOLE [Concomitant]
  8. ACYCLOVIR [Concomitant]
  9. CRESTOR [Concomitant]

REACTIONS (1)
  - PYREXIA [None]
